FAERS Safety Report 7578080-4 (Version None)
Quarter: 2011Q2

REPORT INFORMATION
  Report Type: 
  Country: None (occurrence: None)
  Receive Date: 20110621
  Receipt Date: 20110607
  Transmission Date: 20111010
  Serious: Yes (Hospitalization, Congenital Anomaly, Other)
  Sender: FDA-Public Use
  Company Number: GER/GER/11/0018646

PATIENT
  Sex: Male
  Weight: 2.6 kg

DRUGS (6)
  1. FLUOXETINE [Suspect]
     Indication: DRUG EXPOSURE DURING PREGNANCY
     Dosage: 0 TO 10.6 GESTATIONAL WEEK, TRANSPLACENTAL
     Route: 064
     Dates: start: 20090328, end: 20090612
  2. OMEPRAZOLE [Suspect]
     Indication: DRUG EXPOSURE DURING PREGNANCY
     Dosage: 7 TO 10.6 GESTATIONAL WEEK, TRANSPLACENTAL
     Route: 064
  3. HUMINSULIN NORMAL 100 (HUMAN MIXTARD /00806401/) [Concomitant]
  4. FEMIBION (CALCIUM) [Concomitant]
  5. LYRICA [Suspect]
     Indication: DRUG EXPOSURE DURING PREGNANCY
     Dosage: 0 TO 10.6 GESTATIONAL WEEK, TRANSPLACENTAL
     Route: 064
     Dates: start: 20090328, end: 20090612
  6. NOVALGIN (NOVO-PETRIN) [Suspect]
     Indication: DRUG EXPOSURE DURING PREGNANCY
     Dosage: 0 TO10 GESTATIONAL WEEK, TRANSPLACENTAL
     Route: 064

REACTIONS (6)
  - CONGENITAL AORTIC VALVE INCOMPETENCE [None]
  - CONGENITAL AORTIC VALVE STENOSIS [None]
  - CAESAREAN SECTION [None]
  - ATRIAL SEPTAL DEFECT [None]
  - MATERNAL DRUGS AFFECTING FOETUS [None]
  - SMALL FOR DATES BABY [None]
